FAERS Safety Report 19980259 (Version 1)
Quarter: 2021Q4

REPORT INFORMATION
  Report Type: Spontaneous
  Country: US (occurrence: US)
  Receive Date: 20211021
  Receipt Date: 20211021
  Transmission Date: 20220304
  Serious: No
  Sender: FDA-Public Use
  Company Number: 2021A755165

PATIENT
  Age: 771 Month
  Sex: Female
  Weight: 69.9 kg

DRUGS (1)
  1. FASENRA [Suspect]
     Active Substance: BENRALIZUMAB
     Indication: Asthma
     Route: 058
     Dates: start: 202008

REACTIONS (6)
  - Arthralgia [Recovered/Resolved]
  - Unevaluable event [Unknown]
  - Autoimmune disorder [Unknown]
  - Insomnia [Unknown]
  - Feeling abnormal [Unknown]
  - Asthma [Unknown]

NARRATIVE: CASE EVENT DATE: 20201201
